FAERS Safety Report 11724595 (Version 1)
Quarter: 2015Q4

REPORT INFORMATION
  Report Type: Spontaneous
  Country: US (occurrence: US)
  Receive Date: 20151111
  Receipt Date: 20151111
  Transmission Date: 20160304
  Serious: No
  Sender: FDA-Public Use
  Company Number: US-UCBSA-2014014116

PATIENT
  Sex: Male

DRUGS (1)
  1. VIMPAT [Suspect]
     Active Substance: LACOSAMIDE
     Dosage: FORM: TABLETS/INJECTION, EVENT HAPPENED ON MAINTENANCE DOSE

REACTIONS (1)
  - Abnormal behaviour [Unknown]
